FAERS Safety Report 6869204-2 (Version None)
Quarter: 2010Q3

REPORT INFORMATION
  Report Type: 
  Country: None (occurrence: None)
  Receive Date: 20100722
  Receipt Date: 20080805
  Transmission Date: 20110219
  Serious: No
  Sender: FDA-Public Use
  Company Number: US-PFIZER INC-2008055893

PATIENT
  Sex: Female
  Weight: 72.727 kg

DRUGS (3)
  1. CHANTIX [Suspect]
     Indication: SMOKING CESSATION THERAPY
     Route: 048
     Dates: start: 20080624
  2. ZOLOFT [Concomitant]
  3. TEMAZEPAM [Concomitant]

REACTIONS (4)
  - ANXIETY [None]
  - DRUG DOSE OMISSION [None]
  - FEELING JITTERY [None]
  - INSOMNIA [None]
